FAERS Safety Report 15940399 (Version 2)
Quarter: 2019Q1

REPORT INFORMATION
  Report Type: Spontaneous
  Country: US (occurrence: US)
  Receive Date: 20190208
  Receipt Date: 20190212
  Transmission Date: 20190417
  Serious: Yes (Hospitalization)
  Sender: FDA-Public Use
  Company Number: US-ASTRAZENECA-2019SE21450

PATIENT
  Age: 1027 Month
  Sex: Female
  Weight: 52.2 kg

DRUGS (4)
  1. ALBUTEROL SOL. NEBULIZER [Concomitant]
     Route: 055
  2. ATROVENT NEBULIZER SOL. [Concomitant]
     Indication: CHRONIC OBSTRUCTIVE PULMONARY DISEASE
     Route: 055
  3. SYMBICORT [Suspect]
     Active Substance: BUDESONIDE\FORMOTEROL FUMARATE DIHYDRATE
     Indication: CHRONIC OBSTRUCTIVE PULMONARY DISEASE
     Dosage: 160/4.5 MCG 2 PUFFS TWO TIMES A DAY
     Route: 055
     Dates: start: 2017
  4. ATROVENT NEBULIZER SOL. [Concomitant]
     Indication: ASTHMA
     Route: 055

REACTIONS (10)
  - Body height decreased [Unknown]
  - Off label use of device [Unknown]
  - Disorientation [Recovered/Resolved]
  - Product dose omission [Unknown]
  - Dyspnoea [Unknown]
  - Pulmonary function test decreased [Not Recovered/Not Resolved]
  - Respiratory syncytial virus infection [Unknown]
  - Memory impairment [Unknown]
  - Insomnia [Recovered/Resolved]
  - Weight decreased [Unknown]

NARRATIVE: CASE EVENT DATE: 201712
